FAERS Safety Report 19120564 (Version 1)
Quarter: 2021Q2

REPORT INFORMATION
  Report Type: Spontaneous
  Country: US (occurrence: US)
  Receive Date: 20210409
  Receipt Date: 20210409
  Transmission Date: 20210717
  Serious: Yes (Other)
  Sender: FDA-Public Use
  Company Number: None

PATIENT
  Age: 46 Year
  Sex: Female
  Weight: 114.76 kg

DRUGS (1)
  1. TOPIRAMATE 25MG TABS [Suspect]
     Active Substance: TOPIRAMATE
     Indication: MIGRAINE
     Dosage: ?          OTHER DOSE:TOPAMAX(BRAND NAME;?
     Route: 048

REACTIONS (2)
  - Adverse drug reaction [None]
  - Drug intolerance [None]
